FAERS Safety Report 17620145 (Version 4)
Quarter: 2020Q2

REPORT INFORMATION
  Report Type: Report from Study
  Country: IT (occurrence: IT)
  Receive Date: 20200403
  Receipt Date: 20200420
  Transmission Date: 20200713
  Serious: Yes (Death, Hospitalization)
  Sender: FDA-Public Use
  Company Number: IT-ASTRAZENECA-2020SE43282

PATIENT
  Age: 72 Year
  Sex: Female

DRUGS (18)
  1. RITUXIMAB. [Suspect]
     Active Substance: RITUXIMAB
     Indication: MANTLE CELL LYMPHOMA
     Dosage: 581.25MG ONCE/SINGLE ADMINISTRATION
     Route: 042
     Dates: start: 20191219, end: 20191219
  2. BIFRIZIDE [Concomitant]
     Active Substance: HYDROCHLOROTHIAZIDE
     Indication: HYPERTENSION
     Route: 048
     Dates: start: 2018
  3. DIFOSFONAL [Concomitant]
     Active Substance: CLODRONATE DISODIUM
     Indication: OSTEOPOROSIS
     Route: 048
     Dates: start: 2018
  4. TOTALIP [Concomitant]
     Active Substance: ATORVASTATIN
     Indication: HYPERCHOLESTEROLAEMIA
     Route: 048
     Dates: start: 2018
  5. TIROSINT [Concomitant]
     Active Substance: LEVOTHYROXINE SODIUM
     Indication: THYROIDECTOMY
     Route: 048
     Dates: start: 2013
  6. ACALABRUTINIB. [Suspect]
     Active Substance: ACALABRUTINIB
     Indication: MANTLE CELL LYMPHOMA
     Dosage: END OF STUDY TREATMENT
     Route: 048
     Dates: start: 20191114, end: 20200324
  7. BENDAMUSTINE [Suspect]
     Active Substance: BENDAMUSTINE
     Indication: MANTLE CELL LYMPHOMA
     Dosage: END OF STUDY TREATMENT108.5MG ONCE/SINGLE ADMINISTRATION
     Route: 042
     Dates: start: 20191220, end: 20191220
  8. RITUXIMAB. [Suspect]
     Active Substance: RITUXIMAB
     Indication: MANTLE CELL LYMPHOMA
     Dosage: END OF STUDY TREATMENT581.25MG ONCE/SINGLE ADMINISTRATION
     Route: 042
     Dates: start: 20200226, end: 20200226
  9. NIFEREX [Concomitant]
     Indication: ANAEMIA
     Dosage: 1 CAPSULE DAILY
     Route: 048
     Dates: start: 20191114
  10. ACICLOVIR [Concomitant]
     Active Substance: ACYCLOVIR
     Indication: INFECTION PROPHYLAXIS
     Route: 048
     Dates: start: 20191114
  11. RITUXIMAB. [Suspect]
     Active Substance: RITUXIMAB
     Indication: MANTLE CELL LYMPHOMA
     Dosage: 581.25MG ONCE/SINGLE ADMINISTRATION
     Route: 042
     Dates: start: 20200127, end: 20200127
  12. BENDAMUSTINE [Suspect]
     Active Substance: BENDAMUSTINE
     Indication: MANTLE CELL LYMPHOMA
     Dosage: 139.5MG ONCE/SINGLE ADMINISTRATION
     Route: 042
     Dates: start: 20191114, end: 20191114
  13. BENDAMUSTINE [Suspect]
     Active Substance: BENDAMUSTINE
     Indication: MANTLE CELL LYMPHOMA
     Dosage: 139.5MG ONCE/SINGLE ADMINISTRATION
     Route: 042
     Dates: start: 20191115, end: 20191115
  14. BACTRIM [Concomitant]
     Active Substance: SULFAMETHOXAZOLE\TRIMETHOPRIM
     Indication: INFECTION PROPHYLAXIS
     Dosage: 1 CAPSULE TWICE DAILY TWO TIMES A WEEK
     Route: 048
     Dates: start: 20191114
  15. ZOFRAN [Concomitant]
     Active Substance: ONDANSETRON HYDROCHLORIDE
     Indication: NAUSEA
     Route: 048
     Dates: start: 20191114
  16. RITUXIMAB. [Suspect]
     Active Substance: RITUXIMAB
     Indication: MANTLE CELL LYMPHOMA
     Dosage: 581.25MG ONCE/SINGLE ADMINISTRATION
     Route: 042
     Dates: start: 20191114, end: 20191114
  17. BENDAMUSTINE [Suspect]
     Active Substance: BENDAMUSTINE
     Indication: MANTLE CELL LYMPHOMA
     Dosage: 108.5MG ONCE/SINGLE ADMINISTRATION
     Route: 042
     Dates: start: 20191219, end: 20191219
  18. LEVOPRAID [Concomitant]
     Indication: NAUSEA
     Route: 048
     Dates: start: 20191212

REACTIONS (1)
  - Cerebral haemorrhage [Recovered/Resolved]

NARRATIVE: CASE EVENT DATE: 20200325
